FAERS Safety Report 8949789 (Version 2)
Quarter: 2013Q2

REPORT INFORMATION
  Report Type: Report from Study
  Country: MX (occurrence: MX)
  Receive Date: 20121206
  Receipt Date: 20130515
  Transmission Date: 20140414
  Serious: Yes (Death)
  Sender: FDA-Public Use
  Company Number: PHHY2012MX112135

PATIENT
  Age: 64 Year
  Sex: Male

DRUGS (1)
  1. EXFORGE HCT [Suspect]
     Indication: HYPERTENSION
     Dosage: 1 DF (160 MG VALS, 5 MG AMLO AND 12.5 MG HCTZ), DAILY
     Route: 048

REACTIONS (1)
  - Death [Fatal]
